FAERS Safety Report 4852962-6 (Version None)
Quarter: 2005Q4

REPORT INFORMATION
  Report Type: 
  Country: None (occurrence: None)
  Receive Date: 20051214
  Receipt Date: 20051130
  Transmission Date: 20060501
  Serious: Yes (Other)
  Sender: FDA-Public Use
  Company Number: JP-NOVOPROD-249058

PATIENT
  Age: 9 Year
  Sex: Female

DRUGS (1)
  1. NORDITROPIN NORDIFLEX [Suspect]
     Indication: TURNER'S SYNDROME
     Dosage: N/A
     Route: 058
     Dates: start: 20021126

REACTIONS (1)
  - BASEDOW'S DISEASE [None]
